FAERS Safety Report 5565880-5 (Version None)
Quarter: 2007Q4

REPORT INFORMATION
  Report Type: 
  Country: None (occurrence: None)
  Receive Date: 20071213
  Receipt Date: 20071126
  Transmission Date: 20080405
  Serious: Yes (Hospitalization)
  Sender: FDA-Public Use
  Company Number: 230005J07BRA

PATIENT
  Age: 39 Year
  Sex: Female

DRUGS (1)
  1. REBIF [Suspect]
     Dosage: 22 MCG, 3 IN 1 WEEKS
     Dates: start: 20040801

REACTIONS (6)
  - ASTHENIA [None]
  - COLITIS [None]
  - INCORRECT DOSE ADMINISTERED [None]
  - RESPIRATORY TRACT INFECTION [None]
  - SENSORY LOSS [None]
  - URINARY TRACT INFECTION [None]
